FAERS Safety Report 4630382-7 (Version None)
Quarter: 2005Q2

REPORT INFORMATION
  Report Type: 
  Country: None (occurrence: None)
  Receive Date: 20050406
  Receipt Date: 20050325
  Transmission Date: 20051028
  Serious: Yes (Other)
  Sender: FDA-Public Use
  Company Number: 2005022288

PATIENT
  Age: 57 Year
  Sex: Male

DRUGS (1)
  1. CELEBREX [Suspect]
     Indication: ILL-DEFINED DISORDER
     Dosage: 1 IN 1 D), ORAL
     Route: 048
     Dates: start: 20040813

REACTIONS (1)
  - CONTRAINDICATION TO MEDICAL TREATMENT [None]
